FAERS Safety Report 8920990 (Version 1)
Quarter: 2012Q4

REPORT INFORMATION
  Report Type: 
  Country: US (occurrence: US)
  Receive Date: 20121122
  Receipt Date: 20121122
  Transmission Date: 20130627
  Serious: Yes (Other)
  Sender: FDA-Public Use
  Company Number: US-BRISTOL-MYERS SQUIBB COMPANY-16670325

PATIENT
  Age: 57 Year
  Sex: Female

DRUGS (4)
  1. ORENCIA [Suspect]
     Indication: RHEUMATOID ARTHRITIS
     Dosage: last infusion was on ^MAR2012 or APR2012
restarted with:1000mg
Last dose:Nov2012
     Route: 042
  2. METHOTREXATE [Suspect]
  3. PREDNISONE [Concomitant]
  4. HYDROXYCHLOROQUINE [Concomitant]

REACTIONS (3)
  - Back disorder [Unknown]
  - Urinary tract infection [Unknown]
  - Sinusitis [Unknown]
